FAERS Safety Report 4907135-5 (Version None)
Quarter: 2006Q1

REPORT INFORMATION
  Report Type: 
  Country: None (occurrence: None)
  Receive Date: 20060206
  Receipt Date: 20040817
  Transmission Date: 20060701
  Serious: Yes (Disabling, Other)
  Sender: FDA-Public Use
  Company Number: 2004044200

PATIENT
  Age: 36 Year
  Sex: Male
  Weight: 72 kg

DRUGS (3)
  1. ACCUPRIL [Suspect]
     Indication: HYPERTENSION
     Dosage: 20 MG (20 MG 1 IN 1D) ORAL
     Route: 048
     Dates: start: 20040301, end: 20040330
  2. INDAPAMIDE [Concomitant]
  3. POTASSIUM (POTASSIUM) [Concomitant]

REACTIONS (5)
  - RASH [None]
  - RETINAL DEGENERATION [None]
  - RETINAL PIGMENT EPITHELIOPATHY [None]
  - SCOTOMA [None]
  - VISION BLURRED [None]
